FAERS Safety Report 6400108-5 (Version None)
Quarter: 2009Q4

REPORT INFORMATION
  Report Type: 
  Country: None (occurrence: None)
  Receive Date: 20091014
  Receipt Date: 20091012
  Transmission Date: 20100525
  Serious: Yes (Other)
  Sender: FDA-Public Use
  Company Number: US-ABBOTT-09P-163-0602175-00

PATIENT
  Age: 32 Year
  Sex: Female

DRUGS (1)
  1. RITONAVIR [Suspect]
     Indication: HIV INFECTION
     Route: 048
     Dates: start: 20090825, end: 20090904

REACTIONS (1)
  - ABORTION SPONTANEOUS [None]
